FAERS Safety Report 11087590 (Version 1)
Quarter: 2015Q2

REPORT INFORMATION
  Report Type: Spontaneous
  Country: PL (occurrence: PL)
  Receive Date: 20150504
  Receipt Date: 20150504
  Transmission Date: 20150821
  Serious: Yes (Other)
  Sender: FDA-Public Use
  Company Number: PL-WATSON-2015-09042

PATIENT
  Age: 27 Year
  Sex: Male
  Weight: 76.5 kg

DRUGS (2)
  1. RISPERIDONE (UNKNOWN) [Suspect]
     Active Substance: RISPERIDONE
     Indication: SCHIZOPHRENIA, PARANOID TYPE
     Dosage: 5 MG, DAILY
     Route: 065
  2. RISPERIDONE (UNKNOWN) [Suspect]
     Active Substance: RISPERIDONE
     Dosage: 3 MG, DAILY
     Route: 065

REACTIONS (7)
  - Asthenia [Unknown]
  - Blood cholesterol increased [Not Recovered/Not Resolved]
  - Depressive symptom [Unknown]
  - Apathy [Unknown]
  - Anhedonia [Unknown]
  - Blunted affect [Unknown]
  - Akathisia [Unknown]
